FAERS Safety Report 15342945 (Version 3)
Quarter: 2019Q2

REPORT INFORMATION
  Report Type: Report from Study
  Country: JP (occurrence: JP)
  Receive Date: 20180903
  Receipt Date: 20190623
  Transmission Date: 20190711
  Serious: Yes (Life-Threatening, Hospitalization, Other)
  Sender: FDA-Public Use
  Company Number: JP-CELLTRION INC.-2015JP011268

PATIENT

DRUGS (69)
  1. PREDONINE [Concomitant]
     Active Substance: PREDNISOLONE
     Dosage: 10 MG/DAY
     Dates: start: 20151012, end: 20151018
  2. MIYA-BM [Concomitant]
     Active Substance: CLOSTRIDIUM BUTYRICUM SPORES STRAIN M-55
     Indication: COLITIS ULCERATIVE
     Dosage: 6 DF/DAY
     Dates: start: 20151022
  3. BFLUID [Concomitant]
     Active Substance: AMINO ACIDS\DEXTROSE\ELECTROLYTES NOS\VITAMINS
     Indication: COLITIS ULCERATIVE
     Dosage: 1000 ML/DAY
     Dates: start: 20150918, end: 20150921
  4. INFLIXIMAB BS FOR I.V. INFUSION100 MG [NK] [Suspect]
     Active Substance: INFLIXIMAB
     Indication: COLITIS ULCERATIVE
     Dosage: 320 MG, QD
     Route: 042
     Dates: start: 20150924, end: 20150924
  5. INFLIXIMAB BS FOR I.V. INFUSION100 MG [NK] [Suspect]
     Active Substance: INFLIXIMAB
     Dosage: 330 MG, QD
     Route: 042
     Dates: start: 20160408, end: 20160408
  6. INFLIXIMAB BS FOR I.V. INFUSION100 MG [NK] [Suspect]
     Active Substance: INFLIXIMAB
     Dosage: 670 MG, QD
     Route: 042
     Dates: start: 20160909, end: 20160909
  7. INFLIXIMAB BS FOR I.V. INFUSION100 MG [NK] [Suspect]
     Active Substance: INFLIXIMAB
     Dosage: 700 MG, QD
     Route: 042
     Dates: start: 20161125, end: 20161125
  8. PREDONINE [Concomitant]
     Active Substance: PREDNISOLONE
     Dosage: 15 MG/DAY
     Dates: start: 20151005, end: 20151011
  9. PREDONINE [Concomitant]
     Active Substance: PREDNISOLONE
     Dosage: 5 MG/DAY
     Dates: start: 20151110, end: 20151112
  10. OMEPRAZOLE. [Concomitant]
     Active Substance: OMEPRAZOLE
     Indication: PROPHYLAXIS AGAINST GASTROINTESTINAL ULCER
     Dosage: 40 MG/DAY
     Dates: start: 20150918, end: 20151021
  11. OMEPRAZOLE. [Concomitant]
     Active Substance: OMEPRAZOLE
     Indication: GASTROOESOPHAGEAL REFLUX DISEASE
     Dosage: 40 MG/DAY
     Dates: start: 20151028, end: 20151102
  12. ASPARA POTASSIUM [Concomitant]
     Active Substance: POTASSIUM ASPARTATE
     Indication: HYPOKALAEMIA
     Dosage: 20 ML/DAY
     Dates: start: 20151003, end: 20151028
  13. THYRADIN-S [Concomitant]
     Active Substance: LEVOTHYROXINE
     Dosage: 75 UG/DAY
     Dates: start: 20151008
  14. TALION                             /01587402/ [Concomitant]
     Active Substance: BEPOTASTINE BESILATE
     Dosage: 20 MG/DAY
     Route: 065
     Dates: start: 20160826, end: 20160909
  15. HYDROCORTONE                       /00028603/ [Concomitant]
     Active Substance: HYDROCORTISONE SODIUM PHOSPHATE
     Indication: PROPHYLAXIS
     Dosage: 500 MG/DAY
     Dates: start: 20160603
  16. GASTER [Concomitant]
     Active Substance: FAMOTIDINE
     Dosage: 20  MG/DAY
     Dates: start: 20160617
  17. INFLIXIMAB BS FOR I.V. INFUSION100 MG [NK] [Suspect]
     Active Substance: INFLIXIMAB
     Dosage: 340 MG, QD
     Route: 042
     Dates: start: 20160617, end: 20160617
  18. PREDONINE [Concomitant]
     Active Substance: PREDNISOLONE
     Indication: PROPHYLAXIS
     Dosage: 50 MG/DAY
     Dates: start: 20150926, end: 20150930
  19. ELNEOPA NO.2 [Concomitant]
     Active Substance: AMINO ACIDS\DEXTROSE\ELECTROLYTES NOS\MINERALS\VITAMINS
     Dosage: 2000 ML, DAILY
     Dates: start: 20151005, end: 20151028
  20. SLOW-K [Concomitant]
     Active Substance: POTASSIUM CHLORIDE
     Dosage: 1200-2400 MG/DAY
     Dates: start: 20151102
  21. ELNEOPA NO.1 [Concomitant]
     Active Substance: AMINO ACIDS\DEXTROSE\ELECTROLYTES NOS\MINERALS\VITAMINS
     Dosage: 2000 ML/DAY
     Dates: start: 20151001, end: 20151007
  22. RABEPRAZOLE SODIUM. [Concomitant]
     Active Substance: RABEPRAZOLE SODIUM
     Indication: PROPHYLAXIS AGAINST GASTROINTESTINAL ULCER
     Dosage: 10 MG/DAY
     Dates: start: 20151022, end: 20151028
  23. THYRADIN-S [Concomitant]
     Active Substance: LEVOTHYROXINE
     Indication: POSTOPERATIVE HYPOPITUITARISM
     Dosage: 75 UG/DAY
     Dates: start: 20150919, end: 20151001
  24. BIO-THREE [Concomitant]
     Active Substance: HERBALS
     Indication: COLITIS ULCERATIVE
     Dosage: 6 DF/DAY
     Dates: start: 20151127
  25. TALION                             /01587402/ [Concomitant]
     Active Substance: BEPOTASTINE BESILATE
     Dosage: 20 MG/DAY
     Route: 065
     Dates: start: 20160701, end: 20160715
  26. HYDROCORTONE                       /00028603/ [Concomitant]
     Active Substance: HYDROCORTISONE SODIUM PHOSPHATE
     Dosage: 100 MG/DAY
     Dates: start: 20171125
  27. CELESTAMINE [Concomitant]
     Active Substance: BETAMETHASONE\DEXCHLORPHENIRAMINE MALEATE
     Indication: PROPHYLAXIS
     Dosage: 2  DF/DAY
     Dates: start: 20161024
  28. INFLIXIMAB BS FOR I.V. INFUSION100 MG [NK] [Suspect]
     Active Substance: INFLIXIMAB
     Dosage: 290 MG, QD
     Route: 042
     Dates: start: 20160212, end: 20160212
  29. CEFMETAZON [Concomitant]
     Active Substance: CEFMETAZOLE SODIUM
     Indication: COLITIS ULCERATIVE
     Dosage: 3 G/DAY
     Dates: start: 20150918, end: 20150927
  30. PREDONINE [Concomitant]
     Active Substance: PREDNISOLONE
     Indication: COLITIS ULCERATIVE
     Dosage: 60 MG/DAY
     Dates: start: 20150919, end: 20150925
  31. ELNEOPA NO.1 [Concomitant]
     Active Substance: AMINO ACIDS\DEXTROSE\ELECTROLYTES NOS\MINERALS\VITAMINS
     Indication: COLITIS ULCERATIVE
     Dosage: 2000 ML/DAY
     Dates: start: 20150921, end: 20150923
  32. ZOLPIDEM TARTRATE. [Concomitant]
     Active Substance: ZOLPIDEM TARTRATE
     Indication: DEPRESSION
     Dosage: 5 MG/DAY
     Dates: start: 20151127, end: 20151218
  33. TALION                             /01587402/ [Concomitant]
     Active Substance: BEPOTASTINE BESILATE
     Indication: PROPHYLAXIS
     Dosage: 20 MG/DAY
     Dates: start: 20160401, end: 20160411
  34. HYDROCORTONE                       /00028603/ [Concomitant]
     Active Substance: HYDROCORTISONE SODIUM PHOSPHATE
     Dosage: 200 MG/DAY
     Dates: start: 20160909
  35. INFLIXIMAB BS FOR I.V. INFUSION100 MG [NK] [Suspect]
     Active Substance: INFLIXIMAB
     Dosage: 300 MG, QD
     Route: 042
     Dates: start: 20151019, end: 20151019
  36. INFLIXIMAB BS FOR I.V. INFUSION100 MG [NK] [Suspect]
     Active Substance: INFLIXIMAB
     Dosage: 290 MG, QD
     Route: 042
     Dates: start: 20151106, end: 20151106
  37. INFLIXIMAB BS FOR I.V. INFUSION100 MG [NK] [Suspect]
     Active Substance: INFLIXIMAB
     Dosage: 330 MG, QD
     Route: 042
     Dates: start: 20160715, end: 20160715
  38. SOLU-CORTEF [Concomitant]
     Active Substance: HYDROCORTISONE SODIUM SUCCINATE
     Indication: PROPHYLAXIS
     Dosage: 300 MG/DAY
     Dates: start: 20151001, end: 20151002
  39. ALBUMIN BEHRING [Concomitant]
     Active Substance: ALBUMIN HUMAN
     Dosage: 100 MG/DAY
     Dates: start: 20151002, end: 20151003
  40. CORTRIL [Concomitant]
     Active Substance: HYDROCORTISONE
     Indication: POSTOPERATIVE HYPOPITUITARISM
     Dosage: 50 MG/DAY
     Dates: start: 20150918, end: 20151001
  41. ATARAX-P                           /00058402/ [Concomitant]
     Active Substance: HYDROXYZINE HYDROCHLORIDE
     Indication: ABDOMINAL PAIN
     Dosage: 25 MG/DAY
     Dates: start: 20150924, end: 20151016
  42. SOSEGON                            /00052101/ [Concomitant]
     Active Substance: PENTAZOCINE
     Indication: ABDOMINAL PAIN
     Dosage: 15 MG/DAY
     Dates: start: 20150920, end: 20151016
  43. PREDONINE [Concomitant]
     Active Substance: PREDNISOLONE
     Dosage: 5 MG/DAY
     Dates: start: 20151019, end: 20151025
  44. ELNEOPA NO.2 [Concomitant]
     Active Substance: AMINO ACIDS\DEXTROSE\ELECTROLYTES NOS\MINERALS\VITAMINS
     Indication: COLITIS ULCERATIVE
     Dosage: 2000 ML, DAILY
     Dates: start: 20150923, end: 20151001
  45. ALBUMIN BEHRING [Concomitant]
     Active Substance: ALBUMIN HUMAN
     Indication: HYPOALBUMINAEMIA
     Dosage: 100 MG/DAY
     Dates: start: 20150919, end: 20150922
  46. NEXIUM [Concomitant]
     Active Substance: ESOMEPRAZOLE MAGNESIUM
     Indication: PROPHYLAXIS AGAINST GASTROINTESTINAL ULCER
     Dosage: 20 MG/DAY
     Dates: start: 20151103
  47. PREDONEMA [Concomitant]
     Active Substance: PREDNISOLONE SODIUM PHOSPHATE
     Indication: COLITIS ULCERATIVE
     Dosage: 20 MG/DAY
     Dates: start: 20151106, end: 20151218
  48. IOPAQUE [Concomitant]
     Active Substance: IOHEXOL
     Indication: COMPUTERISED TOMOGRAM
     Dosage: 150 ML/DAY
     Dates: start: 20151111
  49. TALION                             /01587402/ [Concomitant]
     Active Substance: BEPOTASTINE BESILATE
     Dosage: 20 MG/DAY
     Dates: start: 20160520, end: 20160617
  50. SLOW-K [Concomitant]
     Active Substance: POTASSIUM CHLORIDE
     Indication: HYPOKALAEMIA
     Dosage: 3600 MG/DAY
     Dates: start: 20150923, end: 20151001
  51. DOGMATYL [Concomitant]
     Active Substance: SULPIRIDE
     Indication: DEPRESSION
     Dosage: 100 MG/DAY
     Dates: start: 20150918, end: 20151028
  52. ACTONEL [Concomitant]
     Active Substance: RISEDRONATE SODIUM
     Indication: OSTEOPOROSIS
     Dosage: 17.5 MG/DAY
     Dates: start: 20150919
  53. LOPERAMIDE HYDROCHLORIDE. [Concomitant]
     Active Substance: LOPERAMIDE HYDROCHLORIDE
     Indication: DIARRHOEA
     Dosage: 2 MG/DAY
     Dates: start: 20150926, end: 20150930
  54. SOLU-CORTEF [Concomitant]
     Active Substance: HYDROCORTISONE SODIUM SUCCINATE
     Dosage: 100 MG/DAY
     Route: 065
     Dates: start: 20160408
  55. SULBACILLIN [Concomitant]
     Active Substance: AMPICILLIN SODIUM\SULBACTAM SODIUM
     Indication: INFECTION PROPHYLAXIS
     Dosage: 4.5 MG/DAY
     Dates: start: 20151001, end: 20151005
  56. RABEPRAZOLE SODIUM. [Concomitant]
     Active Substance: RABEPRAZOLE SODIUM
     Indication: GASTROOESOPHAGEAL REFLUX DISEASE
  57. CORTRIL [Concomitant]
     Active Substance: HYDROCORTISONE
     Dosage: 30 MG/DAY
     Dates: start: 20151027
  58. SOLYUGEN G [Concomitant]
     Indication: COLITIS ULCERATIVE
     Dosage: 500 ML/DAY
     Dates: start: 20150918, end: 20150920
  59. ASACOL [Concomitant]
     Active Substance: MESALAMINE
     Indication: COLITIS ULCERATIVE
     Dosage: 3600 MG/DAY
     Dates: start: 20151027
  60. IOPAQUE [Concomitant]
     Active Substance: IOHEXOL
     Dosage: 100 ML/DAY
     Dates: start: 20151001
  61. MESALAZINE [Concomitant]
     Active Substance: MESALAMINE
     Indication: COLITIS ULCERATIVE
     Dosage: 1 G/DAY
     Dates: start: 20151127
  62. FERROUS SULFATE. [Concomitant]
     Active Substance: FERROUS SULFATE
     Indication: COLITIS ULCERATIVE
     Dosage: 105 MG/DAY
     Dates: start: 20151218, end: 20160212
  63. HYDROCORTONE                       /00028603/ [Concomitant]
     Active Substance: HYDROCORTISONE SODIUM PHOSPHATE
     Dosage: 300  MG/DAY
     Dates: start: 20160617
  64. INFLIXIMAB BS FOR I.V. INFUSION100 MG [NK] [Suspect]
     Active Substance: INFLIXIMAB
     Dosage: 310 MG, QD
     Route: 042
     Dates: start: 20151218, end: 20151218
  65. INFLIXIMAB BS FOR I.V. INFUSION100 MG [NK] [Suspect]
     Active Substance: INFLIXIMAB
     Dosage: 330 MG, QD
     Route: 042
     Dates: start: 20160603, end: 20160603
  66. AMIPAREN [Concomitant]
     Active Substance: AMINO ACIDS
     Indication: COLITIS ULCERATIVE
     Dosage: 200 ML/DAY
     Dates: start: 20150922, end: 20151028
  67. SOLU-CORTEF [Concomitant]
     Active Substance: HYDROCORTISONE SODIUM SUCCINATE
     Dosage: 200 MG/DAY
     Dates: start: 20151003, end: 20151004
  68. SOLYUGEN F [Concomitant]
     Active Substance: CALCIUM CHLORIDE\POTASSIUM CHLORIDE\SODIUM ACETATE\SODIUM CHLORIDE
     Indication: COLITIS ULCERATIVE
     Dosage: 500 ML/DAY
     Dates: start: 20150918, end: 20150921
  69. GASTER [Concomitant]
     Active Substance: FAMOTIDINE
     Indication: PROPHYLAXIS
     Dosage: 20  MG/DAY
     Dates: start: 20160603

REACTIONS (6)
  - Enteritis infectious [Recovered/Resolved]
  - Inappropriate schedule of product administration [Unknown]
  - Cellulitis [Recovered/Resolved]
  - Sepsis [Recovered/Resolved]
  - Gastric ulcer haemorrhage [Recovered/Resolved]
  - Urticaria [Recovered/Resolved]

NARRATIVE: CASE EVENT DATE: 20151028
